FAERS Safety Report 25756333 (Version 1)
Quarter: 2025Q3

REPORT INFORMATION
  Report Type: Spontaneous
  Country: TW (occurrence: TW)
  Receive Date: 20250903
  Receipt Date: 20250903
  Transmission Date: 20251021
  Serious: Yes (Hospitalization, Other)
  Sender: ALEXION PHARMACEUTICALS
  Company Number: TW-ASTRAZENECA-202508ASI023648TW

PATIENT
  Age: 85 Year
  Sex: Female
  Weight: 58 kg

DRUGS (10)
  1. DAPAGLIFLOZIN [Suspect]
     Active Substance: DAPAGLIFLOZIN
     Indication: Type 2 diabetes mellitus
     Dosage: UNK, QD
     Dates: start: 20241001, end: 20250415
  2. FUROSEMIDE [Concomitant]
     Active Substance: FUROSEMIDE
  3. Amamet [Concomitant]
     Dosage: UNK, QD
  4. SENNOSIDES [Concomitant]
     Active Substance: SENNOSIDES
  5. XARELTO [Concomitant]
     Active Substance: RIVAROXABAN
     Dosage: UNK UNK, QD
  6. SACUBITRIL [Concomitant]
     Active Substance: SACUBITRIL
     Dosage: UNK UNK, BID
  7. Amiorone [Concomitant]
     Dosage: 100 MILLIGRAM, QD
  8. Zulitor [Concomitant]
     Dosage: UNK UNK, QOD
  9. RIVOTRIL [Concomitant]
     Active Substance: CLONAZEPAM
     Dosage: UNK UNK, QD
  10. Spiron [Concomitant]
     Dosage: 25.0 MILLIGRAM, QD

REACTIONS (9)
  - Sepsis [Recovered/Resolved]
  - Urinary tract infection [Recovered/Resolved]
  - Hypotension [Unknown]
  - Dyspnoea [Unknown]
  - Asthenia [Unknown]
  - Decreased appetite [Unknown]
  - Hyperglycaemia [Unknown]
  - Renal impairment [Unknown]
  - C-reactive protein increased [Unknown]

NARRATIVE: CASE EVENT DATE: 20250415
